FAERS Safety Report 5564680-X (Version None)
Quarter: 2007Q4

REPORT INFORMATION
  Report Type: 
  Country: None (occurrence: None)
  Receive Date: 20071212
  Receipt Date: 20071126
  Transmission Date: 20080405
  Serious: Yes (Hospitalization)
  Sender: FDA-Public Use
  Company Number: 2007BI010186

PATIENT
  Age: 21 Year
  Sex: Female
  Weight: 70 kg

DRUGS (4)
  1. AVONEX [Suspect]
     Indication: MULTIPLE SCLEROSIS
     Dosage: 30 UG;QW; IM
     Route: 030
     Dates: start: 20061201, end: 20070406
  2. AMITRIPTYLINE HCL [Concomitant]
  3. IBUPROFEN [Concomitant]
  4. STEMATIL [Concomitant]

REACTIONS (3)
  - INTENTIONAL OVERDOSE [None]
  - LIVER FUNCTION TEST ABNORMAL [None]
  - MULTIPLE SCLEROSIS RELAPSE [None]
